FAERS Safety Report 4884489-X (Version None)
Quarter: 2006Q1

REPORT INFORMATION
  Report Type: 
  Country: None (occurrence: None)
  Receive Date: 20060117
  Receipt Date: 20060104
  Transmission Date: 20060701
  Serious: Yes (Hospitalization, Other)
  Sender: FDA-Public Use
  Company Number: 2006AL000043

PATIENT
  Age: 51 Year
  Sex: Female

DRUGS (2)
  1. CLONAZEPAM [Suspect]
     Dosage: PO
     Route: 048
  2. BUPROPION [Suspect]
     Dosage: 150 MG; PO
     Route: 048

REACTIONS (8)
  - AGITATION [None]
  - BUNDLE BRANCH BLOCK [None]
  - DELIRIUM [None]
  - DISTURBANCE IN ATTENTION [None]
  - ELECTROCARDIOGRAM QRS COMPLEX ABNORMAL [None]
  - HALLUCINATION [None]
  - INTENTIONAL OVERDOSE [None]
  - MENTAL STATUS CHANGES [None]
